FAERS Safety Report 6694189-1 (Version None)
Quarter: 2010Q2

REPORT INFORMATION
  Report Type: 
  Country: None (occurrence: None)
  Receive Date: 20100423
  Receipt Date: 20100414
  Transmission Date: 20101027
  Serious: Yes (Death)
  Sender: FDA-Public Use
  Company Number: GB-ROCHE-693380

PATIENT
  Age: 63 Year
  Sex: Female

DRUGS (2)
  1. TRASTUZUMAB [Suspect]
     Route: 065
  2. VINORELBINE [Suspect]
     Route: 065

REACTIONS (4)
  - CLOSTRIDIAL INFECTION [None]
  - LEUKOPENIA [None]
  - MULTI-ORGAN FAILURE [None]
  - SEPTIC SHOCK [None]
